FAERS Safety Report 8244139-1 (Version None)
Quarter: 2012Q1

REPORT INFORMATION
  Report Type: 
  Country: None (occurrence: None)
  Receive Date: 20120329
  Receipt Date: 20110617
  Transmission Date: 20120608
  Serious: No
  Sender: FDA-Public Use
  Company Number: -MYLANLABS-2011S1012959

PATIENT
  Age: 54 Year
  Sex: Female

DRUGS (3)
  1. AMLODIPINE BESYLATE [Suspect]
     Indication: HYPERTENSION
     Route: 048
     Dates: end: 20110526
  2. BYSTOLIC [Suspect]
     Indication: HYPERTENSION
     Route: 048
     Dates: start: 20101101
  3. AMLODIPINE BESYLATE [Suspect]
     Route: 048
     Dates: start: 20110527, end: 20110608

REACTIONS (1)
  - OEDEMA PERIPHERAL [None]
